FAERS Safety Report 9887657 (Version 2)
Quarter: 2014Q1

REPORT INFORMATION
  Report Type: Spontaneous
  Country: US (occurrence: US)
  Receive Date: 20140211
  Receipt Date: 20140218
  Transmission Date: 20141002
  Serious: Yes (Hospitalization)
  Sender: FDA-Public Use
  Company Number: US-JNJFOC-20140203311

PATIENT
  Age: 35 Year
  Sex: Female

DRUGS (1)
  1. ITRACONAZOLE [Suspect]
     Indication: HISTOPLASMOSIS
     Route: 065

REACTIONS (2)
  - Jaundice [Unknown]
  - Asthenia [Unknown]
